FAERS Safety Report 23046449 (Version 1)
Quarter: 2023Q4

REPORT INFORMATION
  Report Type: Spontaneous
  Country: NL (occurrence: NL)
  Receive Date: 20231009
  Receipt Date: 20231009
  Transmission Date: 20240109
  Serious: Yes (Other)
  Sender: FDA-Public Use
  Company Number: None

PATIENT
  Age: 13 Year
  Sex: Female
  Weight: 56 kg

DRUGS (2)
  1. PROVERA [Suspect]
     Active Substance: MEDROXYPROGESTERONE ACETATE
     Dosage: FREQ:12 H;2X1DAY 1 TABLET
     Dates: start: 19840605
  2. ETHINYL ESTRADIOL [Suspect]
     Active Substance: ETHINYL ESTRADIOL
     Indication: Growth retardation
     Dosage: FREQ:12 H;2X2 TABLETS PER DAY
     Dates: start: 19840605

REACTIONS (2)
  - Infertility [Not Recovered/Not Resolved]
  - Endometriosis [Not Recovered/Not Resolved]
